FAERS Safety Report 15749023 (Version 1)
Quarter: 2018Q4

REPORT INFORMATION
  Report Type: Spontaneous
  Country: FR (occurrence: FR)
  Receive Date: 20181221
  Receipt Date: 20181221
  Transmission Date: 20190205
  Serious: Yes (Hospitalization)
  Sender: FDA-Public Use
  Company Number: FR-SUN PHARMACEUTICAL INDUSTRIES LTD-2018RR-194479

PATIENT
  Age: 63 Year
  Sex: Male
  Weight: 53 kg

DRUGS (30)
  1. ESOMEPRAZOLE MYLAN 20 MG, GELULE GASTRO-RESISTANTE [Suspect]
     Active Substance: ESOMEPRAZOLE
     Indication: GASTROOESOPHAGEAL REFLUX DISEASE
     Dosage: 0-0-1
     Route: 048
     Dates: start: 20130612, end: 20181107
  2. ZOPHREN [Suspect]
     Active Substance: ONDANSETRON
     Indication: ANTIEMETIC SUPPORTIVE CARE
     Dosage: J1 ; CYCLICAL
     Route: 042
     Dates: start: 20180731
  3. BACTRIM [Concomitant]
     Active Substance: SULFAMETHOXAZOLE\TRIMETHOPRIM
     Indication: INFECTION
     Dosage: 800 MILLIGRAM, DAILY
     Route: 048
     Dates: start: 20180907
  4. CELLCEPT [Suspect]
     Active Substance: MYCOPHENOLATE MOFETIL\MYCOPHENOLATE MOFETIL HYDROCHLORIDE
     Indication: PROPHYLAXIS AGAINST TRANSPLANT REJECTION
     Dosage: 1-0-1
     Route: 048
     Dates: start: 2009
  5. CYMBALTA [Suspect]
     Active Substance: DULOXETINE HYDROCHLORIDE
     Indication: ANXIETY
     Dosage: 0-0-1
     Route: 048
     Dates: start: 20180821
  6. POLARAMINE [Suspect]
     Active Substance: DEXCHLORPHENIRAMINE MALEATE
     Indication: ALLERGY PROPHYLAXIS
     Dosage: J1 ; CYCLICAL
     Route: 042
     Dates: start: 20180731, end: 20181122
  7. PRIMPERAN [Suspect]
     Active Substance: METOCLOPRAMIDE HYDROCHLORIDE
     Indication: ANTIEMETIC SUPPORTIVE CARE
     Dosage: J2, J3, J4 ; CYCLICAL
     Route: 048
     Dates: start: 20180801
  8. PHOSPHONEUROS, SOLUTION BUVABLE EN GOUTTES [Concomitant]
     Active Substance: CALCIUM PHOSPHATE, DIBASIC, ANHYDROUS\MAGNESIUM GLYCEROPHOSPHATE\PHOSPHORIC ACID\SODIUM PHOSPHATE, DIBASIC
     Indication: BLOOD PHOSPHORUS DECREASED
     Dosage: 25-0-25 (GOUTTES)
     Route: 048
     Dates: start: 20180821
  9. ATENOLOL ARROW 50 MG, COMPRIME PELLICULE SECABLE [Concomitant]
     Indication: HYPERTENSION
     Dosage: 1-0-0.5
     Route: 048
     Dates: start: 20130612
  10. XYLOCAINE VISQUEUSE 2 POUR CENT, GEL ORAL [Concomitant]
     Indication: ORAL PAIN
     Dosage: 1-1-1-1
     Route: 048
     Dates: start: 20180821
  11. ALPRAZOLAM. [Suspect]
     Active Substance: ALPRAZOLAM
     Indication: ANXIETY
     Dosage: 1-0-1
     Route: 048
     Dates: start: 20180530
  12. AZANTAC [Suspect]
     Active Substance: RANITIDINE HYDROCHLORIDE
     Indication: GASTROOESOPHAGEAL REFLUX DISEASE
     Dosage: CYCLICAL
     Route: 042
     Dates: start: 20180731, end: 20181122
  13. KARDEGIC [Suspect]
     Active Substance: ASPIRIN DL-LYSINE
     Indication: PLATELET AGGREGATION
     Dosage: 1-0-0
     Route: 048
     Dates: start: 20131009
  14. ACTISKENAN 10 MG, GELULE [Suspect]
     Active Substance: MORPHINE SULFATE
     Indication: PAIN
     Dosage: 10 MG SB 6/JOUR
     Route: 048
     Dates: start: 20180821
  15. CORTANCYL 5 MG, COMPRIME [Suspect]
     Active Substance: PREDNISONE
     Indication: PROPHYLAXIS AGAINST TRANSPLANT REJECTION
     Dosage: 1-0-0
     Route: 048
     Dates: start: 2009
  16. ERBITUX [Suspect]
     Active Substance: CETUXIMAB
     Indication: SQUAMOUS CELL CARCINOMA OF HEAD AND NECK
     Dosage: 415 MG J1 J8 J15 ; CYCLICAL
     Route: 042
     Dates: start: 20180731, end: 20181122
  17. FLUOROURACILE [Suspect]
     Active Substance: FLUOROURACIL
     Indication: SQUAMOUS CELL CARCINOMA OF HEAD AND NECK
     Dosage: J1, J2, J2,J4 ; CYCLICAL
     Route: 042
     Dates: start: 20180731, end: 20181125
  18. SKENAN [Suspect]
     Active Substance: MORPHINE SULFATE
     Indication: PAIN
     Dosage: 1-0-1
     Route: 048
     Dates: start: 20180821
  19. ALPRAZOLAM. [Concomitant]
     Active Substance: ALPRAZOLAM
     Indication: METABOLIC ACIDOSIS
     Dosage: 2-2-2-2
     Route: 048
     Dates: start: 20130612
  20. MOVICOL [Concomitant]
     Active Substance: POLYETHYLENE GLYCOL 3350\POTASSIUM CHLORIDE\SODIUM BICARBONATE\SODIUM CHLORIDE
     Indication: CONSTIPATION
     Dosage: 2-0-0 (SACHET)
     Route: 048
     Dates: start: 20180803
  21. ZELITREX 500 MG, COMPRIME ENROBE [Concomitant]
     Active Substance: VALACYCLOVIR HYDROCHLORIDE
     Indication: HERPES ZOSTER
     Dosage: 1-0-1
     Route: 048
     Dates: start: 20180829
  22. SULFARLEM [Concomitant]
     Active Substance: ANETHOLTRITHION
     Indication: APTYALISM
     Dosage: 2-2-2
     Route: 048
     Dates: start: 20180620
  23. LERCANIDIPINE ARROW 10 MG, COMPRIME PELLICULE SECABLE [Suspect]
     Active Substance: LERCANIDIPINE
     Indication: HYPERTENSION
     Dosage: 1-0-0
     Route: 048
     Dates: start: 20140614
  24. IMOVANE [Concomitant]
     Active Substance: ZOPICLONE
     Indication: INSOMNIA
     Dosage: 0-0-0-1
     Route: 048
     Dates: start: 20181009
  25. DOLIPRANE [Concomitant]
     Active Substance: ACETAMINOPHEN
     Indication: PAIN
     Dosage: 1-1-1
     Route: 048
     Dates: start: 20180821
  26. SOLU-MEDROL [Suspect]
     Active Substance: METHYLPREDNISOLONE SODIUM SUCCINATE
     Indication: ALLERGY PROPHYLAXIS
     Dosage: J1 ; CYCLICAL
     Route: 042
     Dates: start: 20180731, end: 20181122
  27. TAREG [Suspect]
     Active Substance: VALSARTAN
     Indication: HYPERTENSION
     Dosage: 0-1-0
     Route: 048
     Dates: start: 20140423, end: 20181107
  28. CARBOPLATIN. [Suspect]
     Active Substance: CARBOPLATIN
     Indication: SQUAMOUS CELL CARCINOMA OF HEAD AND NECK
     Dosage: J1 ; CYCLICAL
     Route: 042
     Dates: start: 20180731, end: 20181122
  29. PROGRAF [Suspect]
     Active Substance: TACROLIMUS\TACROLIMUS ANHYDROUS
     Indication: PROPHYLAXIS AGAINST TRANSPLANT REJECTION
     Dosage: 3 MILLIGRAM, DAILY
     Route: 048
     Dates: start: 2009
  30. UVEDOSE [Concomitant]
     Active Substance: CHOLECALCIFEROL
     Indication: VITAMIN D DEFICIENCY
     Dosage: 100000 INTERNATIONAL UNIT, MONTHLY
     Route: 048
     Dates: start: 20130612, end: 20181114

REACTIONS (2)
  - Small intestinal obstruction [Recovering/Resolving]
  - Abdominal compartment syndrome [Recovering/Resolving]

NARRATIVE: CASE EVENT DATE: 20181108
